FAERS Safety Report 9180733 (Version 2)
Quarter: 2013Q2

REPORT INFORMATION
  Report Type: Spontaneous
  Country: JP (occurrence: JP)
  Receive Date: 20130322
  Receipt Date: 20130411
  Transmission Date: 20140414
  Serious: Yes (Hospitalization)
  Sender: FDA-Public Use
  Company Number: JP-JNJFOC-20130308897

PATIENT
  Age: 73 Year
  Sex: Female
  Weight: 40 kg

DRUGS (9)
  1. XARELTO [Suspect]
     Indication: ATRIAL FIBRILLATION
     Route: 048
     Dates: start: 20130301, end: 20130310
  2. XARELTO [Suspect]
     Indication: ATRIAL FIBRILLATION
     Route: 048
     Dates: start: 20120707, end: 20130219
  3. XARELTO [Suspect]
     Indication: EMBOLIC STROKE
     Route: 048
     Dates: start: 20120707, end: 20130219
  4. XARELTO [Suspect]
     Indication: EMBOLIC STROKE
     Route: 048
     Dates: start: 20130301, end: 20130310
  5. XARELTO [Suspect]
     Indication: CEREBROVASCULAR ACCIDENT PROPHYLAXIS
     Route: 048
     Dates: start: 20120707, end: 20130219
  6. XARELTO [Suspect]
     Indication: CEREBROVASCULAR ACCIDENT PROPHYLAXIS
     Route: 048
     Dates: start: 20130301, end: 20130310
  7. RHEUMATREX [Concomitant]
     Indication: RHEUMATIC DISORDER
     Route: 048
  8. TAKEPRON [Concomitant]
     Indication: GASTRIC ULCER
     Route: 048
  9. UNFRACTIONATED HEPARIN [Concomitant]
     Indication: PRODUCT USED FOR UNKNOWN INDICATION
     Route: 041
     Dates: start: 20130220, end: 20130301

REACTIONS (1)
  - Cerebral infarction [Recovered/Resolved with Sequelae]
